FAERS Safety Report 4318988-6 (Version None)
Quarter: 2004Q1

REPORT INFORMATION
  Report Type: 
  Country: None (occurrence: None)
  Receive Date: 20040317
  Receipt Date: 20040317
  Transmission Date: 20041129
  Serious: Yes (Hospitalization)
  Sender: FDA-Public Use
  Company Number: None

PATIENT
  Age: 17 Year
  Sex: Male

DRUGS (3)
  1. CEFTRIAXONE [Suspect]
     Dosage: 2GM X 1
  2. DIPHENHYDRAMINE HCL [Concomitant]
  3. IMIPENEM [Concomitant]

REACTIONS (2)
  - FLUSHING [None]
  - LIP DISCOLOURATION [None]
